FAERS Safety Report 9946748 (Version 1)
Quarter: 2014Q1

REPORT INFORMATION
  Report Type: Report from Study
  Country: US (occurrence: US)
  Receive Date: 20140303
  Receipt Date: 20140303
  Transmission Date: 20141002
  Serious: No
  Sender: FDA-Public Use
  Company Number: US-ABBVIE-13P-163-1063892-00

PATIENT
  Age: 20 Year
  Sex: Female

DRUGS (6)
  1. HUMIRA [Suspect]
     Indication: CROHN^S DISEASE
     Dosage: LOADING DOSE
     Dates: start: 20130215, end: 20130215
  2. HUMIRA [Suspect]
     Dosage: LOADING DOSE (WAS SUPPOSED TO RECEIVE 80MG)
     Dates: start: 20130301, end: 20130301
  3. HUMIRA [Suspect]
  4. IRON [Concomitant]
     Indication: BLOOD IRON DECREASED
  5. ASACOL [Concomitant]
     Indication: CROHN^S DISEASE
  6. VITAMIN D [Concomitant]
     Indication: VITAMIN SUPPLEMENTATION

REACTIONS (4)
  - Nasopharyngitis [Not Recovered/Not Resolved]
  - Bacterial infection [Not Recovered/Not Resolved]
  - Injection site pain [Not Recovered/Not Resolved]
  - Gastrointestinal pain [Not Recovered/Not Resolved]
